FAERS Safety Report 5957815-8 (Version None)
Quarter: 2008Q4

REPORT INFORMATION
  Report Type: 
  Country: None (occurrence: None)
  Receive Date: 20081107
  Receipt Date: 20081030
  Transmission Date: 20090506
  Serious: Yes (Hospitalization)
  Sender: FDA-Public Use
  Company Number: 2005BI022278

PATIENT
  Age: 41 Year
  Sex: Female

DRUGS (6)
  1. AVONEX [Suspect]
     Indication: MULTIPLE SCLEROSIS
     Dosage: 30 UG;QW;IM
     Route: 030
     Dates: start: 20050115, end: 20051123
  2. ADVIL [Concomitant]
  3. PROZAC [Concomitant]
  4. PROVIGIL [Concomitant]
  5. LO/OVRAL [Concomitant]
  6. HEART MEDICATION [Concomitant]

REACTIONS (5)
  - CORONARY ARTERY OCCLUSION [None]
  - CORONARY ARTERY STENOSIS [None]
  - FATIGUE [None]
  - METABOLIC DISORDER [None]
  - MYOCARDIAL INFARCTION [None]
